FAERS Safety Report 8361487-5 (Version None)
Quarter: 2012Q2

REPORT INFORMATION
  Report Type: 
  Country: None (occurrence: None)
  Receive Date: 20120514
  Receipt Date: 20120508
  Transmission Date: 20120825
  Serious: Yes (Other)
  Sender: FDA-Public Use
  Company Number: A0976719A

PATIENT
  Sex: Male

DRUGS (1)
  1. UREA PEROXIDE [Suspect]
     Indication: EAR DISCOMFORT

REACTIONS (3)
  - EAR DISCOMFORT [None]
  - DRUG INEFFECTIVE [None]
  - HEARING IMPAIRED [None]
